FAERS Safety Report 5773764-2 (Version None)
Quarter: 2008Q2

REPORT INFORMATION
  Report Type: 
  Country: None (occurrence: None)
  Receive Date: 20080616
  Receipt Date: 20080605
  Transmission Date: 20081010
  Serious: Yes (Hospitalization)
  Sender: FDA-Public Use
  Company Number: AUWYE004603JAN07

PATIENT
  Sex: Female

DRUGS (1)
  1. EFFEXOR [Suspect]
     Dosage: 150 MG, FREQUENCY UNKNOWN
     Route: 048
     Dates: start: 20031201

REACTIONS (6)
  - AMENORRHOEA [None]
  - BLOOD PROLACTIN INCREASED [None]
  - MENSTRUATION IRREGULAR [None]
  - NONSPECIFIC REACTION [None]
  - POLYCYSTIC OVARIES [None]
  - WEIGHT INCREASED [None]
